FAERS Safety Report 9105702 (Version 2)
Quarter: 2013Q1

REPORT INFORMATION
  Report Type: Spontaneous
  Country: US (occurrence: US)
  Receive Date: 20130221
  Receipt Date: 20130307
  Transmission Date: 20140127
  Serious: Yes (Other)
  Sender: FDA-Public Use
  Company Number: US-GLAXOSMITHKLINE-A1013107A

PATIENT
  Age: 85 Year
  Sex: Female

DRUGS (4)
  1. ADVAIR [Suspect]
     Indication: ASTHMA
     Route: 055
  2. NEBULIZER [Concomitant]
  3. BLOOD THINNER [Concomitant]
  4. POLYPHARMACY [Concomitant]

REACTIONS (1)
  - Cholecystectomy [Unknown]
